FAERS Safety Report 8919917 (Version 2)
Quarter: 2012Q4

REPORT INFORMATION
  Report Type: 
  Country: JP (occurrence: JP)
  Receive Date: 20121121
  Receipt Date: 20121130
  Transmission Date: 20130627
  Serious: Yes (Other)
  Sender: FDA-Public Use
  Company Number: JP-NOVOPROD-364022

PATIENT
  Sex: Female

DRUGS (5)
  1. NOVOLIN [Suspect]
     Indication: OFF LABEL USE
     Route: 058
  2. HALCION [Suspect]
     Indication: PRODUCT USED FOR UNKNOWN INDICATION
     Route: 048
  3. DEPAS [Suspect]
     Indication: PRODUCT USED FOR UNKNOWN INDICATION
     Route: 048
  4. FLUNITRAZEPAM [Suspect]
     Indication: PRODUCT USED FOR UNKNOWN INDICATION
     Route: 065
  5. ALPRAZOLAM [Suspect]
     Indication: PRODUCT USED FOR UNKNOWN INDICATION
     Route: 048

REACTIONS (5)
  - Intentional drug misuse [Recovered/Resolved]
  - Hypoglycaemia [Recovered/Resolved]
  - Pyrexia [None]
  - Convulsion [None]
  - Urinary incontinence [None]
